FAERS Safety Report 7337783-7 (Version None)
Quarter: 2011Q1

REPORT INFORMATION
  Report Type: 
  Country: None (occurrence: None)
  Receive Date: 20110308
  Receipt Date: 20110209
  Transmission Date: 20110831
  Serious: No
  Sender: FDA-Public Use
  Company Number: US-B.I. PHARMACEUTICALS,INC./RIDGEFIELD-2011-BP-05325BP

PATIENT
  Sex: Male

DRUGS (7)
  1. MULTIVITAMIN [Concomitant]
     Indication: PROPHYLAXIS
  2. PRADAXA [Suspect]
     Indication: CEREBROVASCULAR ACCIDENT
  3. FINASTERIDE [Concomitant]
     Indication: PROSTATIC DISORDER
  4. SOLID TIMI 52 [Concomitant]
     Indication: MYOCARDIAL INFARCTION
  5. ASA [Concomitant]
     Indication: PROPHYLAXIS
  6. METOPROLOL [Concomitant]
     Indication: MYOCARDIAL INFARCTION
  7. PRADAXA [Suspect]
     Indication: MYOCARDIAL INFARCTION
     Dosage: 300 MG
     Route: 048
     Dates: start: 20110101

REACTIONS (1)
  - DIZZINESS [None]
